FAERS Safety Report 5613918-9 (Version None)
Quarter: 2008Q1

REPORT INFORMATION
  Report Type: 
  Country: None (occurrence: None)
  Receive Date: 20080205
  Receipt Date: 20080130
  Transmission Date: 20080703
  Serious: Yes (Other)
  Sender: FDA-Public Use
  Company Number: US-JNJFOC-20080200220

PATIENT
  Sex: Male
  Weight: 22.68 kg

DRUGS (1)
  1. CONCERTA [Suspect]
     Indication: ATTENTION DEFICIT/HYPERACTIVITY DISORDER
     Route: 048

REACTIONS (3)
  - BODY HEIGHT BELOW NORMAL [None]
  - DISTURBANCE IN SOCIAL BEHAVIOUR [None]
  - WEIGHT BELOW NORMAL [None]
